FAERS Safety Report 8854730 (Version 1)
Quarter: 2012Q4

REPORT INFORMATION
  Report Type: 
  Country: JP (occurrence: JP)
  Receive Date: 20121023
  Receipt Date: 20121023
  Transmission Date: 20130627
  Serious: Yes (Other)
  Sender: FDA-Public Use
  Company Number: JP-MYLANLABS-2012S1021322

PATIENT
  Age: 74 Year
  Sex: Female
  Weight: 42 kg

DRUGS (2)
  1. CISPLATIN [Suspect]
     Indication: GASTRIC CANCER
     Dosage: 10 mg/day for 5 days a week
     Route: 065
     Dates: start: 20010308, end: 20010413
  2. FLUOROURACIL [Suspect]
     Indication: GASTRIC CANCER
     Dosage: 250 mg/day for 5 days a week
     Route: 065
     Dates: start: 20010308, end: 20010413

REACTIONS (3)
  - Decreased appetite [Recovered/Resolved]
  - Vomiting [Recovered/Resolved]
  - Blood creatinine increased [Recovered/Resolved]
